FAERS Safety Report 23572451 (Version 2)
Quarter: 2024Q4

REPORT INFORMATION
  Report Type: Report from Study
  Country: US (occurrence: US)
  Receive Date: 20240227
  Receipt Date: 20241120
  Transmission Date: 20250115
  Serious: Yes (Other)
  Sender: NOVARTIS
  Company Number: US-002147023-NVSC2024US040699

PATIENT
  Sex: Male

DRUGS (2)
  1. ENTRESTO [Suspect]
     Active Substance: SACUBITRIL\VALSARTAN
     Indication: Product used for unknown indication
     Dosage: 49/51MG, BID
     Route: 065
  2. XARELTO [Suspect]
     Active Substance: RIVAROXABAN
     Indication: Product used for unknown indication
     Dosage: UNK
     Route: 065

REACTIONS (8)
  - Cholecystitis infective [Unknown]
  - Large intestinal haemorrhage [Unknown]
  - Thrombosis [Unknown]
  - Abscess [Unknown]
  - Blood pressure abnormal [Unknown]
  - Epistaxis [Unknown]
  - Gingival bleeding [Unknown]
  - Fistula [Unknown]
